FAERS Safety Report 9937401 (Version 4)
Quarter: 2015Q2

REPORT INFORMATION
  Report Type: Report from Study
  Country: DE (occurrence: DE)
  Receive Date: 20140303
  Receipt Date: 20150512
  Transmission Date: 20150821
  Serious: Yes (Hospitalization)
  Sender: FDA-Public Use
  Company Number: DE-ROCHE-1168088

PATIENT
  Age: 23 Year
  Sex: Male
  Weight: 81 kg

DRUGS (4)
  1. FUCIDINE [Concomitant]
     Active Substance: FUSIDIC ACID
     Route: 065
     Dates: start: 20111118
  2. IBUPROFEN. [Concomitant]
     Active Substance: IBUPROFEN
     Route: 065
     Dates: start: 20120121
  3. VEMURAFENIB [Suspect]
     Active Substance: VEMURAFENIB
     Indication: METASTATIC MALIGNANT MELANOMA
     Dosage: DATE OF LAST DOSE PRIOR TO SAE WAS 09/DEC/2012
     Route: 048
     Dates: start: 20111021, end: 20131210
  4. VEMURAFENIB [Suspect]
     Active Substance: VEMURAFENIB
     Route: 048
     Dates: start: 20131213

REACTIONS (2)
  - Pilonidal cyst [Recovered/Resolved]
  - Anal fistula [Recovered/Resolved]

NARRATIVE: CASE EVENT DATE: 201208
